FAERS Safety Report 10278324 (Version 2)
Quarter: 2014Q4

REPORT INFORMATION
  Report Type: Spontaneous
  Country: ES (occurrence: ES)
  Receive Date: 20140704
  Receipt Date: 20141009
  Transmission Date: 20150528
  Serious: Yes (Life-Threatening, Hospitalization, Other)
  Sender: FDA-Public Use
  Company Number: PHHY2014ES079889

PATIENT
  Age: 72 Year
  Sex: Female
  Weight: 65 kg

DRUGS (22)
  1. GLIVEC [Suspect]
     Active Substance: IMATINIB MESYLATE
     Indication: CHRONIC MYELOID LEUKAEMIA
     Dosage: 400 MG/24H
     Route: 048
     Dates: start: 20140619, end: 20140624
  2. HYDREA [Suspect]
     Active Substance: HYDROXYUREA
     Indication: CHRONIC MYELOID LEUKAEMIA
     Dosage: 500 MG PER 12 HRS
     Route: 065
     Dates: start: 20140627
  3. HYDREA [Suspect]
     Active Substance: HYDROXYUREA
     Dosage: 500 MG PER 12 HRS
     Route: 065
     Dates: start: 20140723
  4. FUROSEMIDE. [Concomitant]
     Active Substance: FUROSEMIDE
     Indication: PRODUCT USED FOR UNKNOWN INDICATION
     Dosage: UNK UKN, UNK
     Route: 065
  5. INSULIN DETEMIR [Concomitant]
     Active Substance: INSULIN DETEMIR
     Indication: PRODUCT USED FOR UNKNOWN INDICATION
     Dosage: UNK UKN, UNK
     Route: 065
  6. METFORMIN [Concomitant]
     Active Substance: METFORMIN HYDROCHLORIDE
     Indication: PRODUCT USED FOR UNKNOWN INDICATION
     Dosage: UNK UKN, UNK
     Route: 065
  7. PREDNISONE. [Concomitant]
     Active Substance: PREDNISONE
     Dosage: 30 UKN PER 24 HRS
     Route: 065
     Dates: start: 20140801, end: 20140807
  8. GLIVEC [Suspect]
     Active Substance: IMATINIB MESYLATE
     Dosage: 400 MG, UNK
     Route: 048
     Dates: start: 20140627
  9. HYDREA [Suspect]
     Active Substance: HYDROXYUREA
     Dosage: 500 MG PER 24 HRS
     Route: 065
     Dates: start: 20140813
  10. ALOPURINOL [Suspect]
     Active Substance: ALLOPURINOL
     Indication: CHRONIC MYELOID LEUKAEMIA
     Dosage: 300MG/24H
     Route: 065
     Dates: start: 20140619, end: 20140624
  11. EPOETIN [Concomitant]
     Active Substance: ERYTHROPOIETIN
     Indication: PRODUCT USED FOR UNKNOWN INDICATION
     Dosage: UNK UKN, UNK
     Route: 065
  12. PREDNISONE. [Concomitant]
     Active Substance: PREDNISONE
     Dosage: 20 UKN PER 24 HRS
     Route: 065
     Dates: start: 20140808, end: 20140821
  13. BISOPROLOL [Concomitant]
     Active Substance: BISOPROLOL
     Indication: PRODUCT USED FOR UNKNOWN INDICATION
     Dosage: UNK UKN, UNK
     Route: 065
  14. PREDNISONE. [Concomitant]
     Active Substance: PREDNISONE
     Dosage: 40 UKN PER 24 HRS
     Route: 065
     Dates: start: 20140718, end: 20140724
  15. PREDNISONE. [Concomitant]
     Active Substance: PREDNISONE
     Dosage: 05 UKN PER 24 HRS
     Route: 065
     Dates: start: 20140904, end: 20140914
  16. A.R.A [Concomitant]
     Active Substance: LOSARTAN POTASSIUM
     Indication: PRODUCT USED FOR UNKNOWN INDICATION
     Dosage: UNK UKN, UNK
     Route: 065
  17. METILPREDNISOLONE [Concomitant]
     Active Substance: METHYLPREDNISOLONE
     Indication: PRODUCT USED FOR UNKNOWN INDICATION
     Dosage: 80 MG, PER 24 HRS
     Route: 042
     Dates: start: 20140628, end: 20140710
  18. PREDNISONE. [Concomitant]
     Active Substance: PREDNISONE
     Dosage: 50 UKN PER 24 HRS
     Route: 065
     Dates: start: 20140711, end: 20140717
  19. PANTOPRAZOLE [Concomitant]
     Active Substance: PANTOPRAZOLE SODIUM
     Indication: PRODUCT USED FOR UNKNOWN INDICATION
     Dosage: UNK UKN, UNK
     Route: 065
  20. SITAGLIPTIN METFORMIN [Concomitant]
     Active Substance: METFORMIN HYDROCHLORIDE\SITAGLIPTIN PHOSPHATE
     Indication: PRODUCT USED FOR UNKNOWN INDICATION
     Dosage: UNK UKN, UNK
     Route: 065
  21. PREDNISONE. [Concomitant]
     Active Substance: PREDNISONE
     Indication: PRODUCT USED FOR UNKNOWN INDICATION
     Dosage: 70 UKN PER 24 HRS
     Route: 065
  22. PREDNISONE. [Concomitant]
     Active Substance: PREDNISONE
     Dosage: 10 UKN PER 24 HRS
     Route: 065
     Dates: start: 20140822, end: 20140903

REACTIONS (16)
  - General physical health deterioration [Not Recovered/Not Resolved]
  - Herpes zoster [Unknown]
  - Pyrexia [Unknown]
  - Hyponatraemia [Unknown]
  - Oral herpes [Unknown]
  - Vomiting [Unknown]
  - Diarrhoea [Unknown]
  - Renal tubular necrosis [Recovering/Resolving]
  - Neuropathy peripheral [Unknown]
  - Micturition disorder [Unknown]
  - Rash [Unknown]
  - Tubulointerstitial nephritis [Recovering/Resolving]
  - Dehydration [Unknown]
  - Acute kidney injury [Recovered/Resolved]
  - Anuria [Not Recovered/Not Resolved]
  - Nausea [Unknown]

NARRATIVE: CASE EVENT DATE: 20140624
